FAERS Safety Report 5371701-6 (Version None)
Quarter: 2007Q2

REPORT INFORMATION
  Report Type: 
  Country: None (occurrence: None)
  Receive Date: 20070627
  Receipt Date: 20070514
  Transmission Date: 20071010
  Serious: Yes (Hospitalization)
  Sender: FDA-Public Use
  Company Number: US-ASTRAZENECA-2005UW15595

PATIENT
  Age: 16 Year
  Sex: Female

DRUGS (18)
  1. SEROQUEL [Suspect]
     Route: 048
     Dates: start: 20020424, end: 20020815
  2. SEROQUEL [Suspect]
     Route: 048
     Dates: start: 20020815, end: 20021212
  3. SEROQUEL [Suspect]
     Route: 048
     Dates: start: 20021212, end: 20030319
  4. RISPERDAL [Suspect]
     Dates: start: 20020301, end: 20040601
  5. ZYPREXA [Suspect]
     Dates: start: 20020301, end: 20040601
  6. EFFEXOR XR [Concomitant]
  7. CONCERTA [Concomitant]
  8. DEPAKOTE [Concomitant]
  9. PROZAC [Concomitant]
  10. TRILEPTAL [Concomitant]
  11. PAXIL [Concomitant]
  12. ZANTAC [Concomitant]
  13. KLONOPIN [Concomitant]
  14. ORTHO TRI-CYCLEN [Concomitant]
  15. CLONIDINE [Concomitant]
     Route: 048
  16. PEPCID [Concomitant]
  17. BENADRYL [Concomitant]
  18. VITAMIN B-12 [Concomitant]

REACTIONS (7)
  - AGGRESSION [None]
  - ANGER [None]
  - DEPRESSION [None]
  - DIABETES MELLITUS [None]
  - SELF-INJURIOUS IDEATION [None]
  - SUICIDAL IDEATION [None]
  - WEIGHT INCREASED [None]
